FAERS Safety Report 10461259 (Version 1)
Quarter: 2014Q3

REPORT INFORMATION
  Report Type: Spontaneous
  Country: US (occurrence: None)
  Receive Date: 20140917
  Receipt Date: 20140917
  Transmission Date: 20150326
  Serious: Yes (Other)
  Sender: FDA-Public Use
  Company Number: None

PATIENT
  Age: 80 Year
  Sex: Female

DRUGS (14)
  1. DELESTOGEN [Concomitant]
  2. METOPROLOL [Concomitant]
     Active Substance: METOPROLOL
  3. SAM E [Concomitant]
  4. GINKO BILOBA [Concomitant]
  5. GINKO BILOBA [Concomitant]
  6. OMEPRAZOLE. [Concomitant]
     Active Substance: OMEPRAZOLE
  7. FUROSEMIDE. [Concomitant]
     Active Substance: FUROSEMIDE
  8. BENADRYL [Concomitant]
     Active Substance: DIPHENHYDRAMINE HYDROCHLORIDE
  9. ASPIRIN. [Concomitant]
     Active Substance: ASPIRIN
  10. CHOLINE [Concomitant]
     Active Substance: CHOLINE
  11. BIOTIN [Concomitant]
     Active Substance: BIOTIN
  12. PHOSPHATIDYL [Concomitant]
  13. OLYSIO [Suspect]
     Active Substance: SIMEPREVIR
     Indication: HEPATITIS C
     Dosage: 1 PILL QD ORAL
     Route: 048
     Dates: start: 20140801
  14. GINSENG [Concomitant]

REACTIONS (2)
  - Hypoaesthesia [None]
  - Burning sensation [None]

NARRATIVE: CASE EVENT DATE: 20140915
